FAERS Safety Report 6994174-6 (Version None)
Quarter: 2010Q3

REPORT INFORMATION
  Report Type: 
  Country: None (occurrence: None)
  Receive Date: 20100917
  Receipt Date: 20100115
  Transmission Date: 20110219
  Serious: Yes (Other)
  Sender: FDA-Public Use
  Company Number: US-ASTRAZENECA-2009SE16752

PATIENT
  Age: 46 Year
  Sex: Female
  Weight: 79.4 kg

DRUGS (5)
  1. SEROQUEL [Suspect]
     Indication: DEPRESSION
     Dosage: 25 TO 300 MG
     Route: 048
     Dates: start: 20060619
  2. SEROQUEL [Suspect]
     Route: 048
     Dates: start: 20060101, end: 20070101
  3. RISPERDAL [Concomitant]
     Dates: start: 20070101
  4. PROZAC [Concomitant]
  5. AMBIEN [Concomitant]
     Dosage: 10-20 MG

REACTIONS (7)
  - BLOOD CHOLESTEROL INCREASED [None]
  - DIABETIC KETOACIDOSIS [None]
  - HYPERLIPIDAEMIA [None]
  - OBESITY [None]
  - PANCREATITIS [None]
  - PANCREATITIS ACUTE [None]
  - TYPE 2 DIABETES MELLITUS [None]
